FAERS Safety Report 19998654 (Version 1)
Quarter: 2021Q4

REPORT INFORMATION
  Report Type: Spontaneous
  Country: CA (occurrence: CA)
  Receive Date: 20211027
  Receipt Date: 20211027
  Transmission Date: 20220303
  Serious: Yes (Other)
  Sender: FDA-Public Use
  Company Number: CA-BAYER-2021A234033

PATIENT
  Age: 44 Year
  Sex: Female

DRUGS (1)
  1. DESLORATADINE [Suspect]
     Active Substance: DESLORATADINE
     Dosage: UNK
     Route: 065

REACTIONS (2)
  - Throat irritation [Unknown]
  - Product substitution issue [Unknown]
